FAERS Safety Report 8465258-0 (Version None)
Quarter: 2012Q2

REPORT INFORMATION
  Report Type: 
  Country: None (occurrence: None)
  Receive Date: 20120626
  Receipt Date: 20120621
  Transmission Date: 20120825
  Serious: Yes (Hospitalization, Other)
  Sender: FDA-Public Use
  Company Number: FR-GENZYME-CAMP-1002293

PATIENT
  Sex: Female

DRUGS (1)
  1. MABCAMPATH [Suspect]
     Indication: CHRONIC LYMPHOCYTIC LEUKAEMIA
     Dosage: UNK
     Route: 065
     Dates: start: 20120401

REACTIONS (4)
  - APHTHOUS STOMATITIS [None]
  - RASH MACULAR [None]
  - PYREXIA [None]
  - ASPERGILLOSIS [None]
